FAERS Safety Report 22115958 (Version 1)
Quarter: 2023Q1

REPORT INFORMATION
  Report Type: Spontaneous
  Country: US (occurrence: US)
  Receive Date: 20230320
  Receipt Date: 20230320
  Transmission Date: 20230418
  Serious: No
  Sender: FDA-Public Use
  Company Number: US-PFIZER INC-PV202300051749

PATIENT
  Sex: Male

DRUGS (1)
  1. RIMEGEPANT [Suspect]
     Active Substance: RIMEGEPANT
     Indication: Migraine
     Dosage: UNK

REACTIONS (2)
  - Abdominal discomfort [Recovered/Resolved]
  - Constipation [Recovered/Resolved]
